FAERS Safety Report 7356599-9 (Version None)
Quarter: 2011Q1

REPORT INFORMATION
  Report Type: 
  Country: None (occurrence: None)
  Receive Date: 20110316
  Receipt Date: 20110303
  Transmission Date: 20110831
  Serious: Yes (Hospitalization)
  Sender: FDA-Public Use
  Company Number: PHHY2010US24503

PATIENT
  Sex: Male

DRUGS (12)
  1. HYDROCHLOROTHIAZIDE [Concomitant]
     Dosage: 12.5 MG, QD
  2. AMANTADINE HCL [Concomitant]
  3. FISH OIL [Concomitant]
  4. EXTAVIA [Suspect]
     Indication: MULTIPLE SCLEROSIS
     Dosage: 0.25 MG, QOD
     Route: 058
     Dates: start: 20100129
  5. VITAMIN B-12 [Concomitant]
     Dosage: 1000 MG, QD
     Route: 060
  6. VITAMIN D [Concomitant]
     Dosage: UNK
  7. MAGNESIUM [Concomitant]
     Dosage: 400 MG, QD
  8. FEXOFENADINE HCL [Concomitant]
     Dosage: 180 MG, QD
  9. TYLENOL-500 [Concomitant]
     Dosage: UNK
  10. ASPIRIN [Concomitant]
     Dosage: 325 MG, QD
  11. MULTI-VITAMIN [Concomitant]
     Dosage: UNK
  12. BACLOFEN [Concomitant]
     Dosage: 20 MG, TID

REACTIONS (5)
  - MULTIPLE SCLEROSIS RELAPSE [None]
  - CHILLS [None]
  - PYREXIA [None]
  - MUSCLE SPASMS [None]
  - FURUNCLE [None]
